FAERS Safety Report 16726090 (Version 3)
Quarter: 2019Q3

REPORT INFORMATION
  Report Type: Report from Study
  Country: US (occurrence: US)
  Receive Date: 20190821
  Receipt Date: 20190905
  Transmission Date: 20191005
  Serious: Yes (Hospitalization, Other)
  Sender: FDA-Public Use
  Company Number: US-ASTELLAS-2019US030062

PATIENT
  Sex: Female

DRUGS (1)
  1. ISAVUCONAZOLE [Suspect]
     Active Substance: ISAVUCONAZOLE
     Indication: PNEUMONIA CRYPTOCOCCAL
     Dosage: 372 MG, ONCE DAILY (2 CAPSULES OF 186 MG EACH)
     Route: 048

REACTIONS (4)
  - Dementia [Unknown]
  - Herpes zoster [Unknown]
  - Product use in unapproved indication [Unknown]
  - Product dose omission [Unknown]
